FAERS Safety Report 16671108 (Version 1)
Quarter: 2019Q3

REPORT INFORMATION
  Report Type: Spontaneous
  Country: GB (occurrence: GB)
  Receive Date: 20190805
  Receipt Date: 20190805
  Transmission Date: 20191004
  Serious: Yes (Disabling)
  Sender: FDA-Public Use
  Company Number: GB-ANIPHARMA-2019-UK-000130

PATIENT
  Age: 52 Year
  Sex: Female

DRUGS (13)
  1. VICTOZA [Concomitant]
     Active Substance: LIRAGLUTIDE
     Dosage: 1.2 MG QD
     Route: 065
     Dates: start: 20190201
  2. OMEPRAZOLE. [Concomitant]
     Active Substance: OMEPRAZOLE
     Dosage: EVERY DAY
     Route: 065
     Dates: start: 20181112, end: 20190409
  3. WARFARIN SODIUM. [Concomitant]
     Active Substance: WARFARIN SODIUM
     Dosage: UNK
     Route: 065
     Dates: start: 20181112
  4. HUMULIN L [Concomitant]
     Active Substance: INSULIN HUMAN
     Dosage: UNK
     Route: 065
     Dates: start: 20181112
  5. RAMIPRIL. [Concomitant]
     Active Substance: RAMIPRIL
     Dosage: EVERY DAY
     Route: 065
     Dates: start: 20190201
  6. AMITRIPTYLINE HYDROCHLORIDE. [Concomitant]
     Active Substance: AMITRIPTYLINE HYDROCHLORIDE
     Dosage: EVERY DAY
     Route: 065
     Dates: start: 20181112
  7. ATORVASTATIN [Concomitant]
     Active Substance: ATORVASTATIN
     Dosage: EVERY DAY
     Route: 065
     Dates: start: 20181112
  8. LANSOPRAZOLE. [Concomitant]
     Active Substance: LANSOPRAZOLE
     Dosage: EVERY DAY
     Route: 065
     Dates: start: 20190409
  9. BISOPROLOL [Concomitant]
     Active Substance: BISOPROLOL
     Dosage: EVERY DAY
     Route: 065
     Dates: start: 20190201
  10. ZOPICLONE [Concomitant]
     Active Substance: ZOPICLONE
     Dosage: UNK
     Route: 065
     Dates: start: 20181112
  11. CANDESARTAN. [Suspect]
     Active Substance: CANDESARTAN
     Indication: PRODUCT USED FOR UNKNOWN INDICATION
     Dosage: 4 MG UNK
     Route: 048
  12. SERTRALINE [Concomitant]
     Active Substance: SERTRALINE HYDROCHLORIDE
     Dosage: EVERY DAY
     Route: 065
     Dates: start: 20181112
  13. COCODAMOL [Concomitant]
     Active Substance: ACETAMINOPHEN\CODEINE PHOSPHATE
     Dosage: UNK
     Route: 065
     Dates: start: 20181112

REACTIONS (3)
  - Dysarthria [Recovered/Resolved with Sequelae]
  - Hallucination, visual [Recovered/Resolved with Sequelae]
  - Fatigue [Recovered/Resolved with Sequelae]
